FAERS Safety Report 4320196-X (Version None)
Quarter: 2004Q1

REPORT INFORMATION
  Report Type: 
  Country: None (occurrence: None)
  Receive Date: 20040317
  Receipt Date: 20040311
  Transmission Date: 20041129
  Serious: Yes (Hospitalization, Other)
  Sender: FDA-Public Use
  Company Number: FRWYE082302APR03

PATIENT
  Sex: Male

DRUGS (6)
  1. OXAZEPAM [Suspect]
     Dosage: ORAL
     Route: 048
     Dates: start: 20030213
  2. EQUANIL [Suspect]
     Dosage: ORAL
     Route: 048
     Dates: start: 20030213, end: 20030214
  3. LEXOMIL (BROMAZEPAM) [Suspect]
     Dosage: ORAL
     Route: 048
     Dates: start: 20030213, end: 20030214
  4. MEPRONIZINE (ACEPROMETAZINE/MEPROBAMATE) [Suspect]
     Route: 048
     Dates: start: 20040213, end: 20040213
  5. PROZAC [Suspect]
     Dosage: ORAL
     Route: 048
     Dates: start: 20030213
  6. TERCIAN (CYAMEMAZINE) [Suspect]
     Route: 048
     Dates: start: 20030213, end: 20030214

REACTIONS (3)
  - MATERNAL DRUGS AFFECTING FOETUS [None]
  - PREMATURE BABY [None]
  - TACHYCARDIA FOETAL [None]
